FAERS Safety Report 24874491 (Version 1)
Quarter: 2025Q1

REPORT INFORMATION
  Report Type: Spontaneous
  Country: US (occurrence: None)
  Receive Date: 20250122
  Receipt Date: 20250122
  Transmission Date: 20250409
  Serious: No
  Sender: FDA-CTU
  Company Number: None

PATIENT

DRUGS (1)
  1. GLATOPA [Suspect]
     Active Substance: GLATIRAMER ACETATE

REACTIONS (8)
  - Tremor [None]
  - Tremor [None]
  - Pyrexia [None]
  - Headache [None]
  - Arthralgia [None]
  - Fatigue [None]
  - Fatigue [None]
  - Hypersomnia [None]
